FAERS Safety Report 14497497 (Version 1)
Quarter: 2018Q1

REPORT INFORMATION
  Report Type: Spontaneous
  Country: US (occurrence: US)
  Receive Date: 20180206
  Receipt Date: 20180206
  Transmission Date: 20180509
  Serious: No
  Sender: FDA-Public Use
  Company Number: None

PATIENT
  Age: 26 Year
  Sex: Female

DRUGS (3)
  1. BOTOX [Suspect]
     Active Substance: ONABOTULINUMTOXINA
     Indication: VOMITING
     Dosage: DOSE - 155 UNITS?FREQUENCY - ONCE Q 84 DAYS
     Route: 030
     Dates: start: 20150706
  2. BOTOX [Suspect]
     Active Substance: ONABOTULINUMTOXINA
     Indication: MIGRAINE
     Dosage: DOSE - 155 UNITS?FREQUENCY - ONCE Q 84 DAYS
     Route: 030
     Dates: start: 20150706
  3. BOTOX [Suspect]
     Active Substance: ONABOTULINUMTOXINA
     Indication: IMPAIRED GASTRIC EMPTYING
     Dosage: DOSE - 155 UNITS?FREQUENCY - ONCE Q 84 DAYS
     Route: 030
     Dates: start: 20150706

REACTIONS (1)
  - Seizure [None]

NARRATIVE: CASE EVENT DATE: 20180104
